FAERS Safety Report 4396918-9 (Version None)
Quarter: 2004Q3

REPORT INFORMATION
  Report Type: 
  Country: None (occurrence: None)
  Receive Date: 20040708
  Receipt Date: 20040705
  Transmission Date: 20050211
  Serious: Yes (Life-Threatening)
  Sender: FDA-Public Use
  Company Number: 2004AP03430

PATIENT
  Age: 62 Year
  Sex: Male

DRUGS (5)
  1. OMEPRAL [Suspect]
     Indication: MELAENA
     Dosage: 20 MG DAILY PO
     Route: 048
     Dates: start: 20040513, end: 20040519
  2. RACOL [Concomitant]
  3. AMINOFLUID [Concomitant]
  4. VITAMEDIN CAPSULE [Concomitant]
  5. VEEN D [Concomitant]

REACTIONS (8)
  - ALANINE AMINOTRANSFERASE INCREASED [None]
  - ASPARTATE AMINOTRANSFERASE INCREASED [None]
  - BODY TEMPERATURE INCREASED [None]
  - DISSEMINATED INTRAVASCULAR COAGULATION [None]
  - HEPATIC FUNCTION ABNORMAL [None]
  - LEUKOPENIA [None]
  - RENAL FAILURE ACUTE [None]
  - SEPSIS [None]
